FAERS Safety Report 10419981 (Version 1)
Quarter: 2014Q3

REPORT INFORMATION
  Report Type: Spontaneous
  Country: AR (occurrence: AR)
  Receive Date: 20140829
  Receipt Date: 20140829
  Transmission Date: 20150326
  Serious: Yes (Other)
  Sender: FDA-Public Use
  Company Number: PHHY2014AR109011

PATIENT
  Sex: Male

DRUGS (1)
  1. TEGRETOL [Suspect]
     Active Substance: CARBAMAZEPINE
     Indication: ARRHYTHMIA
     Dosage: 3 DF, DAILY
     Route: 064

REACTIONS (2)
  - Umbilical cord around neck [Unknown]
  - Neonatal aspiration [Unknown]
